FAERS Safety Report 15238547 (Version 1)
Quarter: 2018Q3

REPORT INFORMATION
  Report Type: Spontaneous
  Country: US (occurrence: US)
  Receive Date: 20180803
  Receipt Date: 20180803
  Transmission Date: 20181010
  Serious: No
  Sender: FDA-Public Use
  Company Number: US-IMPAX LABORATORIES, INC-2018-IPXL-00651

PATIENT
  Sex: Female

DRUGS (2)
  1. ALBENZA [Suspect]
     Active Substance: ALBENDAZOLE
     Indication: ENTEROBIASIS
     Dosage: UNK
     Route: 065
  2. ALBENZA [Suspect]
     Active Substance: ALBENDAZOLE
     Indication: PRODUCT USE IN UNAPPROVED INDICATION

REACTIONS (1)
  - Drug ineffective for unapproved indication [Unknown]
